FAERS Safety Report 7997312-1 (Version None)
Quarter: 2011Q4

REPORT INFORMATION
  Report Type: 
  Country: None (occurrence: None)
  Receive Date: 20111221
  Receipt Date: 20111210
  Transmission Date: 20120403
  Serious: Yes (Hospitalization)
  Sender: FDA-Public Use
  Company Number: BR-JNJFOC-20111206002

PATIENT
  Sex: Male
  Weight: 76.5 kg

DRUGS (5)
  1. ZOLADEX [Concomitant]
     Indication: HORMONE THERAPY
     Route: 065
     Dates: start: 20110401
  2. ZOLADEX [Concomitant]
     Route: 065
     Dates: start: 20041201, end: 20051201
  3. ABIRATERONE ACETATE [Suspect]
     Route: 048
  4. PREDNISONE [Suspect]
     Indication: PROSTATE CANCER METASTATIC
     Route: 065
     Dates: start: 20111006
  5. ABIRATERONE ACETATE [Suspect]
     Indication: PROSTATE CANCER METASTATIC
     Route: 048
     Dates: start: 20111006

REACTIONS (1)
  - BUNDLE BRANCH BLOCK LEFT [None]
